FAERS Safety Report 8261943-4 (Version None)
Quarter: 2012Q2

REPORT INFORMATION
  Report Type: 
  Country: None (occurrence: None)
  Receive Date: 20120402
  Receipt Date: 20120322
  Transmission Date: 20120825
  Serious: No
  Sender: FDA-Public Use
  Company Number: PHHY20121T023807

PATIENT
  Age: 49 Year
  Sex: Female

DRUGS (3)
  1. TIZANIDINE HYDROCHLORIDE [Suspect]
     Indication: PAIN
     Dosage: 6 MG, CD
     Dates: start: 20120309, end: 20120313
  2. KETOPROFEN [Concomitant]
  3. LANZOPRAZOL (LANSOPRAZOLE) [Concomitant]

REACTIONS (13)
  - FATIGUE [None]
  - ERYTHEMA [None]
  - NAUSEA [None]
  - CONFUSIONAL STATE [None]
  - VISION BLURRED [None]
  - BLEPHARITIS [None]
  - DIZZINESS [None]
  - RASH [None]
  - PAIN [None]
  - TACHYCARDIA [None]
  - MUSCULAR WEAKNESS [None]
  - JOINT SWELLING [None]
  - SENSATION OF HEAVINESS [None]
